FAERS Safety Report 4338568-6 (Version None)
Quarter: 2004Q2

REPORT INFORMATION
  Report Type: 
  Country: None (occurrence: None)
  Receive Date: 20040409
  Receipt Date: 20040402
  Transmission Date: 20050107
  Serious: Yes (Hospitalization)
  Sender: FDA-Public Use
  Company Number: FR-JNJFOC-20040205227

PATIENT
  Age: 84 Year
  Sex: Female
  Weight: 53 kg

DRUGS (6)
  1. REMINYL [Suspect]
     Indication: DEMENTIA ALZHEIMER'S TYPE
     Dosage: SEE IMAGE
     Route: 048
     Dates: start: 20031110, end: 20040101
  2. REMINYL [Suspect]
     Indication: DEMENTIA ALZHEIMER'S TYPE
     Dosage: SEE IMAGE
     Route: 048
     Dates: start: 20040101, end: 20040120
  3. LEVOTHYROXINE SODIUM [Concomitant]
  4. EFFEXOR [Concomitant]
  5. PRAVASTATIN SODIUM [Concomitant]
  6. ASPIRIN [Concomitant]

REACTIONS (6)
  - ANAEMIA [None]
  - APHASIA [None]
  - ATRIAL FIBRILLATION [None]
  - DYSARTHRIA [None]
  - KNEE ARTHROPLASTY [None]
  - POST PROCEDURAL COMPLICATION [None]
